FAERS Safety Report 14077859 (Version 1)
Quarter: 2017Q4

REPORT INFORMATION
  Report Type: Other
  Country: GB (occurrence: GB)
  Receive Date: 20171012
  Receipt Date: 20171012
  Transmission Date: 20180321
  Serious: Yes (Other)
  Sender: FDA-Public Use
  Company Number: GB-LUPIN PHARMACEUTICALS INC.-2017-05818

PATIENT
  Age: 70 Year
  Sex: Male

DRUGS (1)
  1. SERTRALINE [Suspect]
     Active Substance: SERTRALINE HYDROCHLORIDE
     Indication: MID-LIFE CRISIS
     Dosage: UNK
     Route: 065
     Dates: start: 201612

REACTIONS (2)
  - Feeling abnormal [Not Recovered/Not Resolved]
  - Suicide attempt [Unknown]
